FAERS Safety Report 9241735 (Version 1)
Quarter: 2013Q2

REPORT INFORMATION
  Report Type: Spontaneous
  Country: DE (occurrence: DE)
  Receive Date: 20130419
  Receipt Date: 20130426
  Transmission Date: 20140414
  Serious: Yes (Death)
  Sender: FDA-Public Use
  Company Number: DE-UCBSA-081512

PATIENT
  Sex: Female

DRUGS (2)
  1. KEPPRA [Suspect]
     Dosage: UNSPECIFIED DOSE
  2. KEPPRA [Suspect]
     Dosage: UNSPECIFIED DOSE

REACTIONS (2)
  - Neoplasm malignant [Fatal]
  - Dysphagia [Unknown]
